FAERS Safety Report 17277205 (Version 1)
Quarter: 2020Q1

REPORT INFORMATION
  Report Type: Spontaneous
  Country: US (occurrence: US)
  Receive Date: 20200116
  Receipt Date: 20200116
  Transmission Date: 20200409
  Serious: No
  Sender: FDA-Public Use
  Company Number: None

PATIENT
  Age: 51 Year
  Sex: Female
  Weight: 95.4 kg

DRUGS (2)
  1. BELVIQ XR [Suspect]
     Active Substance: LORCASERIN HYDROCHLORIDE
     Indication: OBESITY
     Dates: start: 20190819, end: 20190920
  2. SERTRALINE [Concomitant]
     Active Substance: SERTRALINE HYDROCHLORIDE

REACTIONS (3)
  - Feeling abnormal [None]
  - Somnolence [None]
  - Fatigue [None]

NARRATIVE: CASE EVENT DATE: 20190830
